FAERS Safety Report 22190961 (Version 1)
Quarter: 2023Q2

REPORT INFORMATION
  Report Type: Spontaneous
  Country: PT (occurrence: PT)
  Receive Date: 20230410
  Receipt Date: 20230410
  Transmission Date: 20230721
  Serious: Yes (Other)
  Sender: FDA-Public Use
  Company Number: PT-VIIV HEALTHCARE LIMITED-PT2023EME050474

PATIENT

DRUGS (1)
  1. TRIUMEQ [Suspect]
     Active Substance: ABACAVIR SULFATE\DOLUTEGRAVIR SODIUM\LAMIVUDINE
     Indication: Product used for unknown indication
     Dosage: UNK

REACTIONS (3)
  - Pathogen resistance [Unknown]
  - Viral load increased [Unknown]
  - Adhesion [Unknown]
